FAERS Safety Report 13387076 (Version 2)
Quarter: 2017Q2

REPORT INFORMATION
  Report Type: Report from Study
  Country: JP (occurrence: JP)
  Receive Date: 20170330
  Receipt Date: 20170619
  Transmission Date: 20170830
  Serious: Yes (Other)
  Sender: FDA-Public Use
  Company Number: JP-ASTELLAS-2009JP001542

PATIENT
  Age: 43 Year
  Sex: Female
  Weight: 43 kg

DRUGS (28)
  1. PREDNISOLONE. [Suspect]
     Active Substance: PREDNISOLONE
     Dates: start: 20090528, end: 20100301
  2. FERROMIA [Concomitant]
     Active Substance: FERROUS CITRATE
     Indication: PROPHYLAXIS
     Route: 048
     Dates: start: 20080619, end: 20081009
  3. HALCION [Concomitant]
     Active Substance: TRIAZOLAM
     Indication: PRODUCT USED FOR UNKNOWN INDICATION
     Dosage: 0.25 MG, ONCE DAILY
     Route: 048
  4. TAGAMET [Concomitant]
     Active Substance: CIMETIDINE
     Indication: PROPHYLAXIS
     Route: 048
  5. TAGAMET [Concomitant]
     Active Substance: CIMETIDINE
     Route: 048
  6. PREDNISOLONE. [Suspect]
     Active Substance: PREDNISOLONE
     Indication: LUPUS NEPHRITIS
     Route: 048
     Dates: end: 20070419
  7. PREDNISOLONE. [Suspect]
     Active Substance: PREDNISOLONE
     Route: 048
     Dates: start: 20070706, end: 20070927
  8. CALFINA [Concomitant]
     Active Substance: ALFACALCIDOL
     Indication: PRODUCT USED FOR UNKNOWN INDICATION
     Dosage: 0.5 ?G, ONCE DAILY
     Route: 048
  9. TACROLIMUS. [Suspect]
     Active Substance: TACROLIMUS
     Indication: LUPUS NEPHRITIS
     Route: 048
     Dates: start: 20070213, end: 20070228
  10. BUSCOPAN [Concomitant]
     Active Substance: BUTYLSCOPOLAMINE BROMIDE
     Indication: GASTROENTERITIS
     Route: 048
     Dates: start: 20080626, end: 20080627
  11. TACROLIMUS. [Suspect]
     Active Substance: TACROLIMUS
     Route: 048
     Dates: start: 20070301, end: 20070319
  12. TACROLIMUS. [Suspect]
     Active Substance: TACROLIMUS
     Route: 048
     Dates: start: 20070320, end: 20110116
  13. PREDNISOLONE. [Suspect]
     Active Substance: PREDNISOLONE
     Route: 048
     Dates: start: 20070511, end: 20070607
  14. PREDONINE [Concomitant]
     Active Substance: PREDNISOLONE
     Indication: GASTROENTERITIS
     Route: 065
     Dates: start: 20080626, end: 20080626
  15. SOLDEM 3A [Concomitant]
     Active Substance: CARBOHYDRATES\POTASSIUM CHLORIDE\SODIUM CHLORIDE\SODIUM LACTATE
     Indication: GASTROENTERITIS
     Route: 065
     Dates: start: 20080626, end: 20080626
  16. PREDNISOLONE. [Suspect]
     Active Substance: PREDNISOLONE
     Route: 048
     Dates: start: 20070608, end: 20070705
  17. PREDNISOLONE. [Suspect]
     Active Substance: PREDNISOLONE
     Route: 048
     Dates: start: 20071026, end: 20090527
  18. MEDROL [Suspect]
     Active Substance: METHYLPREDNISOLONE
     Indication: PRODUCT USED FOR UNKNOWN INDICATION
     Dosage: UNK UNK, UNKNOWN FREQ.
     Route: 048
  19. ROHYPNOL [Concomitant]
     Active Substance: FLUNITRAZEPAM
     Indication: PRODUCT USED FOR UNKNOWN INDICATION
     Route: 048
     Dates: end: 20080325
  20. PRIMPERAN [Concomitant]
     Active Substance: METOCLOPRAMIDE HYDROCHLORIDE
     Indication: GASTROENTERITIS
     Route: 065
     Dates: start: 20080626, end: 20080626
  21. CEFZON [Concomitant]
     Active Substance: CEFDINIR
     Indication: UPPER RESPIRATORY TRACT INFLAMMATION
     Dosage: UNK UNK, UNKNOWN FREQ.
     Route: 065
  22. INCREMIN                           /00023544/ [Concomitant]
     Indication: PROPHYLAXIS
     Route: 048
     Dates: start: 20081010, end: 20081106
  23. DEPAS [Concomitant]
     Active Substance: ETIZOLAM
     Indication: ANXIETY DISORDER
     Dosage: 0.5 MG, AS NEEDED
     Route: 048
  24. ASPARA-CA [Concomitant]
     Active Substance: CALCIUM ASPARTATE
     Indication: PRODUCT USED FOR UNKNOWN INDICATION
     Route: 048
  25. PREDNISOLONE. [Suspect]
     Active Substance: PREDNISOLONE
     Route: 048
     Dates: start: 20070420, end: 20070510
  26. PREDNISOLONE. [Suspect]
     Active Substance: PREDNISOLONE
     Route: 048
     Dates: start: 20070928, end: 20071025
  27. PREDNISOLONE. [Suspect]
     Active Substance: PREDNISOLONE
     Dates: start: 20100302
  28. INCREMIN                           /00023544/ [Concomitant]
     Dosage: UNK UNK, UNKNOWN FREQ.
     Route: 048

REACTIONS (6)
  - Cataract [Recovering/Resolving]
  - Anaemia [Recovered/Resolved]
  - Upper respiratory tract inflammation [Recovered/Resolved]
  - Gastroenteritis [Recovered/Resolved]
  - Panic disorder [Recovered/Resolved]
  - Cystitis [Recovered/Resolved]

NARRATIVE: CASE EVENT DATE: 20070419
